FAERS Safety Report 8606149-1 (Version None)
Quarter: 2012Q3

REPORT INFORMATION
  Report Type: 
  Country: None (occurrence: None)
  Receive Date: 20120820
  Receipt Date: 20120815
  Transmission Date: 20120928
  Serious: Yes (Hospitalization)
  Sender: FDA-Public Use
  Company Number: BR-ROCHE-1101912

PATIENT
  Sex: Male

DRUGS (3)
  1. BELATACEPT [Suspect]
     Indication: RENAL TRANSPLANT
     Route: 042
     Dates: start: 20070404
  2. CELLCEPT [Suspect]
     Indication: RENAL TRANSPLANT
     Dates: start: 20070404
  3. PREDNISONE [Suspect]
     Indication: RENAL TRANSPLANT
     Route: 042
     Dates: start: 20070406

REACTIONS (2)
  - GRAFT DYSFUNCTION [None]
  - SINUSITIS [None]
